FAERS Safety Report 11318628 (Version 1)
Quarter: 2015Q3

REPORT INFORMATION
  Report Type: Spontaneous
  Country: FR (occurrence: FR)
  Receive Date: 20150729
  Receipt Date: 20150729
  Transmission Date: 20151125
  Serious: Yes (Life-Threatening, Other)
  Sender: FDA-Public Use
  Company Number: FR-HOSPIRA-2948406

PATIENT
  Age: 58 Year
  Sex: Male

DRUGS (6)
  1. TERCIAN                            /00759301/ [Suspect]
     Active Substance: CYAMEMAZINE
     Indication: PRODUCT USED FOR UNKNOWN INDICATION
     Route: 048
  2. MARCAINE [Suspect]
     Active Substance: BUPIVACAINE HYDROCHLORIDE
     Indication: SPINAL ANAESTHESIA
     Route: 037
     Dates: start: 20150603, end: 20150603
  3. SERESTA [Suspect]
     Active Substance: OXAZEPAM
     Indication: PRODUCT USED FOR UNKNOWN INDICATION
     Route: 048
  4. REMIFENTANIL HOSPIRA [Suspect]
     Active Substance: REMIFENTANIL HYDROCHLORIDE
     Indication: SPINAL ANAESTHESIA
     Route: 042
     Dates: start: 20150603, end: 20150603
  5. CODEINE [Concomitant]
     Active Substance: CODEINE
     Indication: PRODUCT USED FOR UNKNOWN INDICATION
  6. BACLOFENE [Suspect]
     Active Substance: BACLOFEN
     Indication: PRODUCT USED FOR UNKNOWN INDICATION
     Route: 048

REACTIONS (7)
  - Cardiac arrest [Recovered/Resolved]
  - Coma [None]
  - Withdrawal syndrome [None]
  - Drug screen positive [None]
  - Autonomic nervous system imbalance [Unknown]
  - Ventricular tachycardia [None]
  - Cardio-respiratory arrest [Unknown]

NARRATIVE: CASE EVENT DATE: 20150603
